FAERS Safety Report 19326178 (Version 7)
Quarter: 2023Q1

REPORT INFORMATION
  Report Type: Report from Study
  Country: US (occurrence: US)
  Receive Date: 20210528
  Receipt Date: 20230308
  Transmission Date: 20230418
  Serious: Yes (Hospitalization, Other)
  Sender: FDA-Public Use
  Company Number: US-TAKEDA-US202033828

PATIENT
  Age: 12 Year
  Sex: Female
  Weight: 20 kg

DRUGS (22)
  1. TEDUGLUTIDE [Suspect]
     Active Substance: TEDUGLUTIDE
     Indication: Short-bowel syndrome
     Dosage: 10 MILLIGRAM (7 DOSES PER WEEK), OTHER
     Route: 065
     Dates: start: 20190912, end: 20210326
  2. TEDUGLUTIDE [Suspect]
     Active Substance: TEDUGLUTIDE
     Indication: Short-bowel syndrome
     Dosage: 10 MILLIGRAM (7 DOSES PER WEEK), OTHER
     Route: 065
     Dates: start: 20190912, end: 20210326
  3. TEDUGLUTIDE [Suspect]
     Active Substance: TEDUGLUTIDE
     Indication: Short-bowel syndrome
     Dosage: 10 MILLIGRAM (7 DOSES PER WEEK), OTHER
     Route: 065
     Dates: start: 20190912, end: 20210326
  4. TEDUGLUTIDE [Suspect]
     Active Substance: TEDUGLUTIDE
     Indication: Short-bowel syndrome
     Dosage: 10 MILLIGRAM (7 DOSES PER WEEK), OTHER
     Route: 065
     Dates: start: 20190912, end: 20210326
  5. TEDUGLUTIDE [Suspect]
     Active Substance: TEDUGLUTIDE
     Dosage: 10 MILLIGRAM PER MILLILITRE, QD
     Route: 058
     Dates: start: 20190712
  6. TEDUGLUTIDE [Suspect]
     Active Substance: TEDUGLUTIDE
     Dosage: 10 MILLIGRAM PER MILLILITRE, QD
     Route: 058
     Dates: start: 20190712
  7. TEDUGLUTIDE [Suspect]
     Active Substance: TEDUGLUTIDE
     Dosage: 10 MILLIGRAM PER MILLILITRE, QD
     Route: 058
     Dates: start: 20190712
  8. TEDUGLUTIDE [Suspect]
     Active Substance: TEDUGLUTIDE
     Dosage: 10 MILLIGRAM PER MILLILITRE, QD
     Route: 058
     Dates: start: 20190712
  9. CLARITIN [Concomitant]
     Active Substance: LORATADINE
     Dosage: UNK UNK, QD,PRN
     Route: 065
  10. LOVENOX [Concomitant]
     Active Substance: ENOXAPARIN SODIUM
     Indication: Product used for unknown indication
     Dosage: 40 MILLIGRAM, QD
     Route: 058
     Dates: start: 2020
  11. NYSTATIN [Concomitant]
     Active Substance: NYSTATIN
     Dosage: UNK UNK, PRN
     Route: 061
  12. Sulfatrim pediatric [Concomitant]
     Indication: Gastrointestinal disorder
     Dosage: 200 MILLIGRAM, BID
     Route: 050
     Dates: start: 20190731
  13. VANCOMYCIN [Concomitant]
     Active Substance: VANCOMYCIN
     Indication: Device related infection
     Dosage: UNK
     Route: 042
  14. VANCOMYCIN [Concomitant]
     Active Substance: VANCOMYCIN
     Dosage: UNK
     Route: 061
     Dates: start: 20210119
  15. ZOSYN [Concomitant]
     Active Substance: PIPERACILLIN SODIUM\TAZOBACTAM SODIUM
     Indication: Abdominal infection
     Route: 042
  16. ZOSYN [Concomitant]
     Active Substance: PIPERACILLIN SODIUM\TAZOBACTAM SODIUM
     Indication: Device related infection
  17. MELATONIN [Concomitant]
     Active Substance: MELATONIN
     Indication: Product used for unknown indication
     Dosage: 5 MILLIGRAM, BEDTIME
     Route: 048
     Dates: start: 20210323, end: 20210326
  18. RIFAXIMIN [Concomitant]
     Active Substance: RIFAXIMIN
     Indication: Overgrowth bacterial
     Dosage: 200 MILLIGRAM, BID
     Route: 048
  19. RIFAXIMIN [Concomitant]
     Active Substance: RIFAXIMIN
     Dosage: UNK, MONTHLY
     Route: 065
     Dates: start: 202203
  20. FERROUS SULFATE [Concomitant]
     Active Substance: FERROUS SULFATE
     Indication: Anaemia
     Dosage: 65 MILLIGRAM, BID
     Route: 048
     Dates: start: 20220819
  21. BACTRIM [Concomitant]
     Active Substance: SULFAMETHOXAZOLE\TRIMETHOPRIM
     Indication: Overgrowth bacterial
     Dosage: UNK UNK, MONTHLY
     Route: 065
  22. LEVOFLOXACIN [Concomitant]
     Active Substance: LEVOFLOXACIN
     Indication: Bacteraemia
     Dosage: 500 MILLIGRAM, QD
     Route: 048
     Dates: start: 20210728, end: 20210729

REACTIONS (2)
  - Rhinovirus infection [Recovered/Resolved]
  - Vascular device infection [Recovered/Resolved]

NARRATIVE: CASE EVENT DATE: 20200713
